FAERS Safety Report 15715442 (Version 1)
Quarter: 2018Q4

REPORT INFORMATION
  Report Type: Spontaneous
  Country: GB (occurrence: GB)
  Receive Date: 20181212
  Receipt Date: 20181212
  Transmission Date: 20190205
  Serious: Yes (Death)
  Sender: FDA-Public Use
  Company Number: GB-TEVA-2018-GB-986677

PATIENT
  Sex: Female

DRUGS (4)
  1. PREDNISOLONE 5 MG [Concomitant]
     Active Substance: PREDNISOLONE
  2. VALGANCICLOVIR 450 MG [Concomitant]
  3. RAPAMUNE [Concomitant]
     Active Substance: SIROLIMUS
  4. MYFENAX [Suspect]
     Active Substance: MYCOPHENOLATE MOFETIL
     Indication: PRODUCT USED FOR UNKNOWN INDICATION
     Dosage: UNKNOWN FREQUENCY
     Route: 065

REACTIONS (1)
  - Death [Fatal]
